FAERS Safety Report 9542811 (Version 1)
Quarter: 2013Q3

REPORT INFORMATION
  Report Type: Spontaneous
  Country: US (occurrence: US)
  Receive Date: 20130923
  Receipt Date: 20130923
  Transmission Date: 20140515
  Serious: No
  Sender: FDA-Public Use
  Company Number: US-PFIZER INC-2013272693

PATIENT
  Age: 59 Year
  Sex: Female
  Weight: 111 kg

DRUGS (5)
  1. CHANTIX [Suspect]
     Indication: SMOKING CESSATION THERAPY
     Dosage: UNK
     Dates: start: 2008
  2. METOPROLOL ER [Concomitant]
     Indication: HYPERTENSION
     Dosage: UNK
  3. LEVOTHYROXINE [Concomitant]
     Indication: THYROID DISORDER
     Dosage: UNK
  4. KEPPRA [Concomitant]
     Indication: CONVULSION
     Dosage: UNK
  5. VIMPAT [Concomitant]
     Indication: CONVULSION
     Dosage: UNK

REACTIONS (1)
  - Cataract [Unknown]
